FAERS Safety Report 13483652 (Version 1)
Quarter: 2017Q2

REPORT INFORMATION
  Report Type: Report from Study
  Country: MX (occurrence: MX)
  Receive Date: 20170426
  Receipt Date: 20170426
  Transmission Date: 20170830
  Serious: Yes (Hospitalization)
  Sender: FDA-Public Use
  Company Number: MX-UCBSA-2017015323

PATIENT
  Sex: Female
  Weight: 16.5 kg

DRUGS (24)
  1. LACOSAMIDE. [Suspect]
     Active Substance: LACOSAMIDE
     Dosage: 1.8 ML, 2X/DAY (BID)
     Route: 048
  2. OMEPRAZOLE. [Concomitant]
     Active Substance: OMEPRAZOLE
     Indication: GASTROOESOPHAGEAL REFLUX DISEASE
     Dosage: 20 MG, ONCE DAILY (QD)
     Dates: start: 2013
  3. LACOSAMIDE. [Suspect]
     Active Substance: LACOSAMIDE
     Indication: OFF LABEL USE
     Dosage: 1.1 ML, 2X/DAY (BID)
     Route: 048
  4. LACOSAMIDE. [Suspect]
     Active Substance: LACOSAMIDE
     Dosage: 1.3 ML, 2X/DAY (BID)
     Route: 048
  5. LACOSAMIDE. [Suspect]
     Active Substance: LACOSAMIDE
     Dosage: 1.4 ML, 2X/DAY (BID)
     Route: 048
  6. LACOSAMIDE. [Suspect]
     Active Substance: LACOSAMIDE
     Dosage: 2.1 ML, 2X/DAY (BID)
     Route: 048
  7. LACOSAMIDE. [Suspect]
     Active Substance: LACOSAMIDE
     Dosage: 2.2 ML, 2X/DAY (BID)
     Route: 048
  8. LACOSAMIDE. [Suspect]
     Active Substance: LACOSAMIDE
     Dosage: 1.2 ML, 2X/DAY (BID)
     Route: 048
  9. CLOBAZAM [Concomitant]
     Active Substance: CLOBAZAM
     Indication: EPILEPSY
     Dosage: 1/4TABLET/12HRS
     Dates: start: 20170415
  10. LACOSAMIDE. [Suspect]
     Active Substance: LACOSAMIDE
     Dosage: 2 ML, 2X/DAY (BID)
     Route: 048
  11. LACOSAMIDE. [Suspect]
     Active Substance: LACOSAMIDE
     Dosage: 2.3 ML, 2X/DAY (BID)
     Route: 048
  12. LEVETIRACETAM. [Concomitant]
     Active Substance: LEVETIRACETAM
     Indication: TUBEROUS SCLEROSIS
  13. LACOSAMIDE. [Suspect]
     Active Substance: LACOSAMIDE
     Dosage: 1.5 ML, 2X/DAY (BID)
     Route: 048
  14. LACOSAMIDE. [Suspect]
     Active Substance: LACOSAMIDE
     Dosage: 2.5 ML, 2X/DAY (BID)
     Route: 048
  15. TOPIRAMATE. [Concomitant]
     Active Substance: TOPIRAMATE
     Indication: EPILEPSY
     Dosage: 50 MG AT MORNING AND 100 MG AT NIGHT, 2X/DAY (BID)
  16. LEVETIRACETAM. [Concomitant]
     Active Substance: LEVETIRACETAM
     Indication: EPILEPSY
     Dosage: 7.5 ML, 2X/DAY (BID)
     Dates: start: 2013
  17. LACOSAMIDE. [Suspect]
     Active Substance: LACOSAMIDE
     Indication: TUBEROUS SCLEROSIS
     Dosage: 1 ML, 2X/DAY (BID)
     Route: 048
     Dates: start: 2016, end: 2016
  18. LACOSAMIDE. [Suspect]
     Active Substance: LACOSAMIDE
     Dosage: 1.7 ML, 2X/DAY (BID)
     Route: 048
  19. LACOSAMIDE. [Suspect]
     Active Substance: LACOSAMIDE
     Dosage: 1.9 ML, 2X/DAY (BID)
     Route: 048
  20. LACOSAMIDE. [Suspect]
     Active Substance: LACOSAMIDE
     Indication: EPILEPSY
     Dosage: 1.5 ML, 2X/DAY (BID)
     Route: 048
     Dates: start: 2016, end: 2016
  21. LACOSAMIDE. [Suspect]
     Active Substance: LACOSAMIDE
     Dosage: 1.6 ML, 2X/DAY (BID)
     Route: 048
  22. LACOSAMIDE. [Suspect]
     Active Substance: LACOSAMIDE
     Dosage: 2.4 ML, 2X/DAY (BID)
     Route: 048
  23. CISAPRIDE [Concomitant]
     Active Substance: CISAPRIDE
     Indication: GASTROOESOPHAGEAL REFLUX DISEASE
     Dosage: 3.2ML/8HRS, AS NEEDED (PRN)
     Dates: start: 2017
  24. LACOSAMIDE. [Suspect]
     Active Substance: LACOSAMIDE
     Dosage: 2.3 ML, 2X/DAY (BID)
     Route: 048

REACTIONS (9)
  - Atonic seizures [Not Recovered/Not Resolved]
  - Petit mal epilepsy [Not Recovered/Not Resolved]
  - Unevaluable event [Unknown]
  - Drug ineffective for unapproved indication [Unknown]
  - Change in seizure presentation [Unknown]
  - Product colour issue [Unknown]
  - Seizure [Not Recovered/Not Resolved]
  - Diaphragmatic disorder [Recovered/Resolved]
  - Off label use [Unknown]

NARRATIVE: CASE EVENT DATE: 2016
